FAERS Safety Report 7518267-X (Version None)
Quarter: 2011Q2

REPORT INFORMATION
  Report Type: 
  Country: None (occurrence: None)
  Receive Date: 20110602
  Receipt Date: 20110526
  Transmission Date: 20111010
  Serious: Yes (Other)
  Sender: FDA-Public Use
  Company Number: US-ABBOTT-11P-163-0729162-00

PATIENT
  Age: 38 Year
  Sex: Female

DRUGS (4)
  1. CELEXA [Concomitant]
     Indication: ANXIETY
  2. ZEGERID [Concomitant]
     Indication: GASTROOESOPHAGEAL REFLUX DISEASE
     Dosage: DURING THE DAY, AS REQUIRED
  3. HUMIRA [Suspect]
     Indication: PSORIASIS
     Route: 058
     Dates: start: 20110101, end: 20110301
  4. PROTONIX [Concomitant]
     Indication: GASTROOESOPHAGEAL REFLUX DISEASE

REACTIONS (3)
  - PAPILLOEDEMA [None]
  - VISUAL IMPAIRMENT [None]
  - VISION BLURRED [None]
